FAERS Safety Report 17376441 (Version 15)
Quarter: 2021Q3

REPORT INFORMATION
  Report Type: Other
  Country: DE (occurrence: DE)
  Receive Date: 20200206
  Receipt Date: 20210819
  Transmission Date: 20211014
  Serious: Yes (Other)
  Sender: FDA-Public Use
  Company Number: DE-ROCHE-2215494

PATIENT
  Age: 37 Year
  Sex: Female

DRUGS (25)
  1. ZOPICLON [Concomitant]
     Active Substance: ZOPICLONE
  2. HUMALOG [Concomitant]
     Active Substance: INSULIN LISPRO
     Dosage: BY VALUE AT MEALTIME
  3. NOVALGIN (METAMIZOLE SODIUM) [Concomitant]
     Active Substance: METAMIZOLE SODIUM
  4. OCREVUS [Suspect]
     Active Substance: OCRELIZUMAB
     Route: 042
  5. HYDROMORPHONE [Concomitant]
     Active Substance: HYDROMORPHONE
     Route: 048
  6. IBUPROFEN. [Concomitant]
     Active Substance: IBUPROFEN
  7. SATIVEX [Concomitant]
     Active Substance: NABIXIMOLS
  8. GABAPENTIN. [Concomitant]
     Active Substance: GABAPENTIN
     Dosage: 1?1?1?1
  9. HYDROMORPHONE [Concomitant]
     Active Substance: HYDROMORPHONE
     Dosage: 1?0?0
     Route: 048
  10. L?THYROXIN [Concomitant]
     Active Substance: LEVOTHYROXINE SODIUM
  11. DOMINAL (GERMANY) [Concomitant]
  12. LANTUS [Concomitant]
     Active Substance: INSULIN GLARGINE
     Dosage: 36 IU ? 0 ? 42 IU
  13. OCREVUS [Suspect]
     Active Substance: OCRELIZUMAB
     Route: 042
     Dates: start: 20181126
  14. OCREVUS [Suspect]
     Active Substance: OCRELIZUMAB
     Route: 042
     Dates: start: 202003
  15. CITALOPRAM [Concomitant]
     Active Substance: CITALOPRAM HYDROBROMIDE
     Dosage: 1?0?0
  16. HYDROMORPHONE [Concomitant]
     Active Substance: HYDROMORPHONE
     Dosage: 1?0?0
     Route: 048
  17. ZOPICLON [Concomitant]
     Active Substance: ZOPICLONE
     Dosage: 0?0?2 AT NIGHT
  18. OCREVUS [Suspect]
     Active Substance: OCRELIZUMAB
     Route: 042
     Dates: start: 20190523
  19. PANTOPRAZOLE [Concomitant]
     Active Substance: PANTOPRAZOLE
     Dosage: 1?0?1
  20. NIFURANTIN [Concomitant]
     Active Substance: NITROFURANTOIN
  21. OCREVUS [Suspect]
     Active Substance: OCRELIZUMAB
     Indication: SECONDARY PROGRESSIVE MULTIPLE SCLEROSIS
     Dosage: LAST GIVEN OCRELIZUMAB INFUSION WAS APPLIED IN /MAR/2020.
     Route: 042
     Dates: start: 20181112
  22. OCREVUS [Suspect]
     Active Substance: OCRELIZUMAB
     Route: 042
     Dates: start: 20201007
  23. HYDROMORPHONE [Concomitant]
     Active Substance: HYDROMORPHONE
     Dosage: 32MG ? 16MG ? 32MG ? 16MG
     Route: 048
  24. TRIMIPRAMIN [Concomitant]
     Active Substance: TRIMIPRAMINE
     Dosage: 0?0?1
  25. SIMVASTATIN. [Concomitant]
     Active Substance: SIMVASTATIN
     Dosage: 0?0?1

REACTIONS (24)
  - Off label use [Unknown]
  - Pleurisy [Recovered/Resolved]
  - Pain in extremity [Not Recovered/Not Resolved]
  - Bladder disorder [Unknown]
  - Back pain [Not Recovered/Not Resolved]
  - Abdominal discomfort [Not Recovered/Not Resolved]
  - Fatigue [Recovered/Resolved]
  - Pain in extremity [Recovered/Resolved]
  - Urinary tract infection [Unknown]
  - Multiple sclerosis relapse [Not Recovered/Not Resolved]
  - Renal disorder [Not Recovered/Not Resolved]
  - Pyrexia [Recovered/Resolved]
  - Nasopharyngitis [Recovered/Resolved]
  - Fall [Unknown]
  - Pelvic inflammatory disease [Not Recovered/Not Resolved]
  - Headache [Recovered/Resolved]
  - Abdominal pain upper [Not Recovered/Not Resolved]
  - Face injury [Not Recovered/Not Resolved]
  - Inflammation [Recovered/Resolved]
  - Blister [Recovered/Resolved]
  - Pneumonia [Recovered/Resolved]
  - Blood glucose increased [Recovered/Resolved]
  - Haematoma [Recovered/Resolved]
  - Liver function test increased [Unknown]

NARRATIVE: CASE EVENT DATE: 20181112
